FAERS Safety Report 25837262 (Version 3)
Quarter: 2025Q4

REPORT INFORMATION
  Report Type: Spontaneous
  Country: EU (occurrence: EU)
  Receive Date: 20250923
  Receipt Date: 20251010
  Transmission Date: 20260118
  Serious: Yes (Life-Threatening, Hospitalization, Other)
  Sender: ELI LILLY AND COMPANY
  Company Number: EU-ELI_LILLY_AND_COMPANY-CZ202509019863

PATIENT
  Age: 54 Year
  Sex: Male

DRUGS (2)
  1. LEBRIKIZUMAB [Suspect]
     Active Substance: LEBRIKIZUMAB
     Indication: Dermatitis atopic
     Dosage: 250 MG, AS PER SUMMARY OF PRODUCT CHARACTERISTICS (SMPC)
     Route: 058
     Dates: start: 20250416, end: 20250806
  2. LEBRIKIZUMAB [Suspect]
     Active Substance: LEBRIKIZUMAB
     Dosage: 250 MG, AS PER SUMMARY OF PRODUCT CHARACTERISTICS (SMPC)
     Route: 058
     Dates: start: 20250416, end: 20250806

REACTIONS (1)
  - Colitis ulcerative [Unknown]

NARRATIVE: CASE EVENT DATE: 20250612
